FAERS Safety Report 20007095 (Version 1)
Quarter: 2021Q4

REPORT INFORMATION
  Report Type: Spontaneous
  Country: FR (occurrence: FR)
  Receive Date: 20211028
  Receipt Date: 20211028
  Transmission Date: 20220304
  Serious: Yes (Hospitalization)
  Sender: FDA-Public Use
  Company Number: FR-FRESENIUS KABI-FK202111602

PATIENT
  Age: 75 Year
  Sex: Female
  Weight: 53 kg

DRUGS (18)
  1. IRINOTECAN [Suspect]
     Active Substance: IRINOTECAN
     Indication: Adenocarcinoma pancreas
     Dosage: IRINOTECAN KABI 20 MG/ML CONCENTRATE FOR SOLUTION FOR INFUSION ?1ST CURE (C1)
     Route: 042
     Dates: start: 20210412
  2. IRINOTECAN [Suspect]
     Active Substance: IRINOTECAN
     Dosage: 2ND CURE (C2)
     Route: 042
     Dates: start: 20210427
  3. IRINOTECAN [Suspect]
     Active Substance: IRINOTECAN
     Dosage: AT CURE 3
     Route: 042
     Dates: start: 20210511
  4. IRINOTECAN [Suspect]
     Active Substance: IRINOTECAN
     Dosage: THE PATIENT WAS TREATED WITH THE COMPLETE DOSE OF IRINOTECAN WITH AN INFUSION OVER 3 HOURS?AT CURE 5
     Route: 042
     Dates: start: 20210608
  5. FLUOROURACIL\IRINOTECAN\LEUCOVORIN\OXALIPLATIN [Suspect]
     Active Substance: FLUOROURACIL\IRINOTECAN\LEUCOVORIN\OXALIPLATIN
     Indication: Adenocarcinoma pancreas
     Dosage: 1ST CURE (C1)
     Route: 065
     Dates: start: 20210412
  6. OXALIPLATIN [Suspect]
     Active Substance: OXALIPLATIN
     Indication: Adenocarcinoma pancreas
     Dosage: OXALIPLATINE ACCORD 5 MG/ML, CONCENTRATE FOR SOLUTION FOR INFUSION?INFUSED OVER 4 HOURS INSTEAD OF 2
     Route: 042
     Dates: start: 20210427
  7. OXALIPLATIN [Suspect]
     Active Substance: OXALIPLATIN
     Dosage: AT CURE 4?REINTRODUCTION AT 70 PERCENT OF THE DOSAGE
     Route: 042
     Dates: start: 20210525
  8. OXALIPLATIN [Suspect]
     Active Substance: OXALIPLATIN
     Dosage: AT CURE 5 OVER 2 HOURS?70 PERCENT OF THE DOSE OF OXALIPLATINE OVER 2 HOURS
     Route: 042
     Dates: start: 20210608
  9. CLORAZEPATE DIPOTASSIUM [Suspect]
     Active Substance: CLORAZEPATE DIPOTASSIUM
     Indication: Premedication
     Dosage: STARTED BEFORE CHEMOTHERAPY
     Route: 065
     Dates: start: 20210608
  10. PENICILLIN V BENZATHINE [Concomitant]
     Active Substance: PENICILLIN V BENZATHINE
     Indication: Product used for unknown indication
     Dosage: 1 MUI 1 IN MORNING AND 1 IN EVENING
     Route: 065
  11. PANCREATIN [Concomitant]
     Active Substance: PANCRELIPASE
     Indication: Product used for unknown indication
     Dosage: 40000 UI 2 IN MORNING, 2 AT LUNCH AND 2 IN EVENING
     Route: 065
  12. LANSOPRAZOLE [Concomitant]
     Active Substance: LANSOPRAZOLE
     Indication: Product used for unknown indication
     Dosage: 1 IN MORNING
     Route: 065
  13. APREPITANT [Concomitant]
     Active Substance: APREPITANT
     Indication: Product used for unknown indication
     Dosage: D1
     Route: 065
  14. APREPITANT [Concomitant]
     Active Substance: APREPITANT
     Dosage: D2 AND D3
     Route: 065
  15. TRIMEBUTINE [Concomitant]
     Active Substance: TRIMEBUTINE
     Indication: Pain
     Route: 065
  16. ONDANSETRON [Concomitant]
     Active Substance: ONDANSETRON
     Indication: Nausea
     Route: 065
  17. TINZAPARIN SODIUM [Concomitant]
     Active Substance: TINZAPARIN SODIUM
     Indication: Product used for unknown indication
     Dosage: PER DAY
     Route: 058
  18. FILGRASTIM [Concomitant]
     Active Substance: FILGRASTIM
     Indication: Product used for unknown indication
     Dosage: PER DAY AT D5 OF THE CURE
     Route: 058

REACTIONS (7)
  - Aphasia [Recovering/Resolving]
  - Neuropathy peripheral [Recovering/Resolving]
  - Dysarthria [Recovering/Resolving]
  - Muscle spasms [Recovering/Resolving]
  - Nausea [Recovering/Resolving]
  - Diarrhoea [Recovering/Resolving]
  - Asthenia [Recovering/Resolving]

NARRATIVE: CASE EVENT DATE: 20210412
